FAERS Safety Report 5989448-1 (Version None)
Quarter: 2008Q4

REPORT INFORMATION
  Report Type: 
  Country: None (occurrence: None)
  Receive Date: 20081205
  Receipt Date: 20081121
  Transmission Date: 20090506
  Serious: Yes (Hospitalization)
  Sender: FDA-Public Use
  Company Number: 2008S1000323

PATIENT
  Age: 51 Year
  Sex: Female
  Weight: 52 kg

DRUGS (16)
  1. CUBICIN [Suspect]
     Indication: WOUND INFECTION STAPHYLOCOCCAL
     Dosage: 9.6 MG/KG; Q24H; IV
     Route: 042
  2. CIPROFLOXACIN HCL [Suspect]
     Dosage: 500 MG; BID;
  3. FLAGYL [Suspect]
     Dosage: 1 GM; Q24H;
  4. ALPRAZOLAM [Concomitant]
  5. DIGOXIN [Concomitant]
  6. COLACE [Concomitant]
  7. LASIX [Concomitant]
  8. MILK OF MAGNESIA [Concomitant]
  9. MEGACE [Concomitant]
  10. PERCOCET [Concomitant]
  11. PAXIL [Concomitant]
  12. AMBIEN [Concomitant]
  13. DUONEB [Concomitant]
  14. TUSSIONEX [Concomitant]
  15. CLONIDINE [Concomitant]
  16. COUMADIN [Concomitant]

REACTIONS (12)
  - ASTHENIA [None]
  - CHEST DISCOMFORT [None]
  - DECUBITUS ULCER [None]
  - ESCHERICHIA URINARY TRACT INFECTION [None]
  - GAZE PALSY [None]
  - GRAND MAL CONVULSION [None]
  - HYPOGLYCAEMIA [None]
  - MUSCULAR WEAKNESS [None]
  - RESPIRATORY RATE INCREASED [None]
  - RESTLESSNESS [None]
  - STAPHYLOCOCCAL ABSCESS [None]
  - VISION BLURRED [None]
